FAERS Safety Report 9019847 (Version 1)
Quarter: 2013Q1

REPORT INFORMATION
  Report Type: Spontaneous
  Country: AR (occurrence: AR)
  Receive Date: 20130118
  Receipt Date: 20130118
  Transmission Date: 20140127
  Serious: Yes (Other)
  Sender: FDA-Public Use
  Company Number: AR-PFIZER INC-2013017988

PATIENT
  Age: 15 Year
  Sex: Male

DRUGS (1)
  1. GENOTROPIN [Suspect]
     Indication: GROWTH HORMONE DEFICIENCY
     Dosage: 0.6-1 MG 6X/WEEK
     Dates: start: 20110501

REACTIONS (4)
  - Syncope [Unknown]
  - Hypotension [Unknown]
  - Malaise [Unknown]
  - Dizziness [Unknown]
